FAERS Safety Report 9477401 (Version 1)
Quarter: 2013Q3

REPORT INFORMATION
  Report Type: Spontaneous
  Country: CA (occurrence: CA)
  Receive Date: 20130826
  Receipt Date: 20130826
  Transmission Date: 20140515
  Serious: Yes (Other)
  Sender: FDA-Public Use
  Company Number: CHPA2013CA013247

PATIENT
  Age: 82 Year
  Sex: Male

DRUGS (2)
  1. EX-LAX CHOCOLATE PIECES [Suspect]
     Dosage: 2 DF, UNK
     Route: 048
  2. EX-LAX UNKNOWN [Suspect]
     Indication: CONSTIPATION
     Dosage: 2 DF, UNK
     Route: 048

REACTIONS (4)
  - Diabetes mellitus [Unknown]
  - Hypertension [Unknown]
  - Blood cholesterol increased [Unknown]
  - Constipation [Unknown]
